FAERS Safety Report 8017888-8 (Version None)
Quarter: 2012Q1

REPORT INFORMATION
  Report Type: 
  Country: None (occurrence: None)
  Receive Date: 20120103
  Receipt Date: 20111221
  Transmission Date: 20120608
  Serious: Yes (Other)
  Sender: FDA-Public Use
  Company Number: GB-BAYER-2011-122953

PATIENT
  Sex: Female

DRUGS (1)
  1. YASMIN, FILM-COATED TABLETS, 0.03 MG/3 MG [Suspect]
     Dosage: UNK

REACTIONS (1)
  - COELIAC DISEASE [None]
